FAERS Safety Report 6347132-9 (Version None)
Quarter: 2009Q3

REPORT INFORMATION
  Report Type: 
  Country: None (occurrence: None)
  Receive Date: 20090910
  Receipt Date: 20090806
  Transmission Date: 20100115
  Serious: No
  Sender: FDA-Public Use
  Company Number: US-BAYER-200929676NA

PATIENT
  Age: 42 Year
  Sex: Female

DRUGS (1)
  1. MIRENA [Suspect]
     Indication: MENORRHAGIA
     Dosage: CONTINUOUS
     Route: 015
     Dates: start: 20090313

REACTIONS (4)
  - DEPRESSION [None]
  - LOSS OF LIBIDO [None]
  - MOOD SWINGS [None]
  - WEIGHT INCREASED [None]
